FAERS Safety Report 6169227-5 (Version None)
Quarter: 2009Q2

REPORT INFORMATION
  Report Type: 
  Country: None (occurrence: None)
  Receive Date: 20090424
  Receipt Date: 20090419
  Transmission Date: 20091009
  Serious: Yes (Other)
  Sender: FDA-Public Use
  Company Number: CHPA2009US09862

PATIENT
  Age: 56 Year
  Sex: Female
  Weight: 61.2 kg

DRUGS (3)
  1. NICOTINE [Suspect]
     Indication: SMOKING CESSATION THERAPY
     Dosage: 21 MG, QD, TRANSDERMAL
     Route: 062
     Dates: start: 20090313, end: 20090419
  2. HYDROCORTISONE [Concomitant]
  3. OXYGEN THERAPY (NO INGREDIENTS/SUBSTANCES) [Concomitant]

REACTIONS (7)
  - APPLICATION SITE ERYTHEMA [None]
  - APPLICATION SITE RASH [None]
  - DYSPNOEA [None]
  - INAPPROPRIATE SCHEDULE OF DRUG ADMINISTRATION [None]
  - PYREXIA [None]
  - SCAB [None]
  - SKIN DISCOLOURATION [None]
